FAERS Safety Report 20471582 (Version 3)
Quarter: 2022Q1

REPORT INFORMATION
  Report Type: Spontaneous
  Country: US (occurrence: US)
  Receive Date: 20220214
  Receipt Date: 20220311
  Transmission Date: 20220423
  Serious: Yes (Life-Threatening)
  Sender: FDA-Public Use
  Company Number: US-SA-SAC20220209000575

PATIENT
  Sex: Female

DRUGS (4)
  1. DUPIXENT [Suspect]
     Active Substance: DUPILUMAB
     Indication: Dermatitis atopic
     Dosage: 300 MG, QOW
     Route: 058
     Dates: start: 20180703
  2. LOSARTAN POTASSIUM [Concomitant]
     Active Substance: LOSARTAN POTASSIUM
  3. MELOXICAM [Concomitant]
     Active Substance: MELOXICAM
  4. TRALOKINUMAB [Concomitant]
     Active Substance: TRALOKINUMAB

REACTIONS (7)
  - Lacrimation increased [Unknown]
  - Malaise [Unknown]
  - Eye allergy [Unknown]
  - Eyelids pruritus [Not Recovered/Not Resolved]
  - Eyelid exfoliation [Not Recovered/Not Resolved]
  - Eyelid skin dryness [Not Recovered/Not Resolved]
  - Eczema [Not Recovered/Not Resolved]
